FAERS Safety Report 5514636-8 (Version None)
Quarter: 2007Q4

REPORT INFORMATION
  Report Type: 
  Country: None (occurrence: None)
  Receive Date: 20071113
  Receipt Date: 20071108
  Transmission Date: 20080405
  Serious: Yes (Other)
  Sender: FDA-Public Use
  Company Number: CA-ASTRAZENECA-2007UW26053

PATIENT
  Age: 30 Year
  Sex: Female

DRUGS (3)
  1. SENSORCAINE [Suspect]
     Route: 008
  2. EPINEPHRINE [Suspect]
  3. FENTANYL [Suspect]

REACTIONS (2)
  - ASTHENIA [None]
  - HYPOAESTHESIA [None]
